FAERS Safety Report 7107505-3 (Version None)
Quarter: 2010Q4

REPORT INFORMATION
  Report Type: 
  Country: None (occurrence: None)
  Receive Date: 20101117
  Receipt Date: 20101108
  Transmission Date: 20110411
  Serious: Yes (Hospitalization)
  Sender: FDA-Public Use
  Company Number: US-TEVA-254813USA

PATIENT
  Age: 29 Year
  Sex: Female

DRUGS (1)
  1. TOPIRAMATE [Suspect]
     Dosage: 25 MG TWICE DAILY
     Route: 048

REACTIONS (2)
  - MYOCLONUS [None]
  - PSYCHOTIC DISORDER [None]
